FAERS Safety Report 4504836-8 (Version None)
Quarter: 2004Q3

REPORT INFORMATION
  Report Type: 
  Country: None (occurrence: None)
  Receive Date: 20040927
  Receipt Date: 20040708
  Transmission Date: 20050211
  Serious: No
  Sender: FDA-Public Use
  Company Number: USA040772186

PATIENT
  Sex: Female

DRUGS (2)
  1. STRATTERA [Suspect]
     Indication: ATTENTION DEFICIT/HYPERACTIVITY DISORDER
     Dosage: 80 MG/1 DAY
     Dates: start: 20040617
  2. SYNTHROID [Concomitant]

REACTIONS (6)
  - ANOREXIA [None]
  - DISTURBANCE IN ATTENTION [None]
  - INSOMNIA [None]
  - MIDDLE INSOMNIA [None]
  - SLEEP DISORDER [None]
  - STOMACH DISCOMFORT [None]
